FAERS Safety Report 6405252-4 (Version None)
Quarter: 2009Q4

REPORT INFORMATION
  Report Type: 
  Country: None (occurrence: None)
  Receive Date: 20091016
  Receipt Date: 20091016
  Transmission Date: 20100525
  Serious: Yes (Other)
  Sender: FDA-Public Use
  Company Number: None

PATIENT
  Age: 17 Year
  Sex: Male

DRUGS (2)
  1. ALBUTEROL [Suspect]
     Indication: ASTHMA
     Dosage: 2.5MG/3ML Q 4 HOURS NEB
     Dates: start: 20090921, end: 20091006
  2. ALBUTEROL [Suspect]
     Indication: PNEUMONIA
     Dosage: 2.5MG/3ML Q 4 HOURS NEB
     Dates: start: 20090921, end: 20091006

REACTIONS (1)
  - TACHYCARDIA [None]
